FAERS Safety Report 15313301 (Version 1)
Quarter: 2018Q3

REPORT INFORMATION
  Report Type: Other
  Country: NL (occurrence: NL)
  Receive Date: 20180823
  Receipt Date: 20180823
  Transmission Date: 20181010
  Serious: Yes (Other)
  Sender: FDA-Public Use
  Company Number: NL-DENTSPLY-2018SCDP000363

PATIENT
  Age: 64 Year
  Sex: Female

DRUGS (5)
  1. XYLOCAINE WITH ADRENALINE (EPINEPHRINE) [Suspect]
     Active Substance: EPINEPHRINE BITARTRATE\LIDOCAINE HYDROCHLORIDE
     Indication: LOCAL ANAESTHESIA
     Dosage: 1 % LIDOCAINE AND 1:200000 EPINEPHRINE
  2. OXYBUPROCAINE [Suspect]
     Active Substance: BENOXINATE
     Indication: LOCAL ANAESTHESIA
     Dosage: 0.04 %, TOPICAL DROPS
     Route: 061
  3. SODIUM HYDROGEN CARBONATE [Suspect]
     Active Substance: SODIUM BICARBONATE
     Indication: PRODUCT USED FOR UNKNOWN INDICATION
     Dosage: UNK
  4. HYPROMELLOSE [Concomitant]
     Active Substance: HYPROMELLOSES
     Indication: PRODUCT USED FOR UNKNOWN INDICATION
     Dosage: UNK
  5. CARBOMER [Concomitant]
     Active Substance: CARBOMER
     Indication: PRODUCT USED FOR UNKNOWN INDICATION
     Dosage: 2 MG/G EYE GEL

REACTIONS (1)
  - Angle closure glaucoma [Recovered/Resolved]
